FAERS Safety Report 5842784-1 (Version None)
Quarter: 2008Q3

REPORT INFORMATION
  Report Type: 
  Country: None (occurrence: None)
  Receive Date: 20080811
  Receipt Date: 20080804
  Transmission Date: 20090109
  Serious: Yes (Hospitalization)
  Sender: FDA-Public Use
  Company Number: 2008BI014575

PATIENT
  Age: 55 Year
  Sex: Female
  Weight: 92.5338 kg

DRUGS (1)
  1. TYSABRI [Suspect]
     Indication: MULTIPLE SCLEROSIS
     Dosage: 300 MG;QM;IV
     Route: 042
     Dates: start: 20070710

REACTIONS (2)
  - MUCOEPIDERMOID CARCINOMA [None]
  - SALIVARY GLAND CANCER [None]
